FAERS Safety Report 20662148 (Version 1)
Quarter: 2022Q2

REPORT INFORMATION
  Report Type: Spontaneous
  Country: US (occurrence: None)
  Receive Date: 20220401
  Receipt Date: 20220401
  Transmission Date: 20220720
  Serious: Yes (Other)
  Sender: FDA-Public Use
  Company Number: 2022A129111

PATIENT
  Age: 67 Year
  Sex: Female

DRUGS (1)
  1. SAPHNELO [Suspect]
     Active Substance: ANIFROLUMAB-FNIA
     Indication: Systemic lupus erythematosus
     Route: 041

REACTIONS (4)
  - Swollen tongue [Recovered/Resolved]
  - Lip swelling [Recovered/Resolved]
  - Pharyngeal swelling [Recovered/Resolved]
  - Burning sensation [Recovered/Resolved]
